FAERS Safety Report 10230915 (Version 1)
Quarter: 2014Q2

REPORT INFORMATION
  Report Type: Spontaneous
  Country: FR (occurrence: FR)
  Receive Date: 20140611
  Receipt Date: 20140611
  Transmission Date: 20141212
  Serious: Yes (Hospitalization)
  Sender: FDA-Public Use
  Company Number: FR-ASTRAZENECA-2014SE39229

PATIENT
  Age: 59 Year
  Sex: Female

DRUGS (4)
  1. XEROQUEL [Suspect]
     Route: 048
     Dates: start: 20140507
  2. ZYPREXA [Suspect]
     Route: 048
  3. LEVOTHYROX [Concomitant]
     Route: 048
  4. TERALITHE [Concomitant]
     Route: 048

REACTIONS (1)
  - Ischaemic stroke [Recovered/Resolved with Sequelae]
